FAERS Safety Report 5435927-5 (Version None)
Quarter: 2007Q3

REPORT INFORMATION
  Report Type: 
  Country: None (occurrence: None)
  Receive Date: 20070831
  Receipt Date: 20070727
  Transmission Date: 20080115
  Serious: No
  Sender: FDA-Public Use
  Company Number: A0666397A

PATIENT
  Age: 41 Year
  Sex: Female

DRUGS (5)
  1. ALLI [Suspect]
     Indication: WEIGHT CONTROL
     Route: 048
     Dates: start: 20070714, end: 20070715
  2. NEXIUM [Concomitant]
  3. SUCRALFATE [Concomitant]
  4. INDERAL [Concomitant]
  5. NORTRIPTYLINE HCL [Concomitant]

REACTIONS (1)
  - GASTRIC ULCER [None]
